FAERS Safety Report 7781973-6 (Version None)
Quarter: 2011Q3

REPORT INFORMATION
  Report Type: 
  Country: None (occurrence: None)
  Receive Date: 20110927
  Receipt Date: 20110921
  Transmission Date: 20111222
  Serious: Yes (Hospitalization, Other)
  Sender: FDA-Public Use
  Company Number: PHEH2011US04374

PATIENT
  Sex: Female

DRUGS (10)
  1. CALCIUM CARBONATE [Concomitant]
  2. TYLENOL-500 [Concomitant]
  3. RECLAST [Suspect]
     Indication: OSTEOPOROSIS
     Dosage: UNK UKN, UNK
     Route: 042
     Dates: start: 20110829
  4. ZOCOR [Concomitant]
     Dosage: UNK UKN, UNK
  5. AMBIEN [Concomitant]
     Dosage: UNK UKN, UNK
  6. COZAAR [Concomitant]
     Dosage: 50 MG, UNK
  7. PRILOSEC [Concomitant]
     Dosage: UNK UKN, UNK
  8. NORVASC [Concomitant]
     Dosage: UNK UKN, UNK
  9. ASPIRIN [Concomitant]
     Dosage: 81 MG, UNK
  10. ATIVAN [Concomitant]
     Dosage: UNK UKN, UNK

REACTIONS (15)
  - DYSPNOEA [None]
  - CONFUSIONAL STATE [None]
  - TREMOR [None]
  - ARTHRALGIA [None]
  - HYPOAESTHESIA [None]
  - NAUSEA [None]
  - HEADACHE [None]
  - SUPRAVENTRICULAR TACHYCARDIA [None]
  - AGITATION [None]
  - NECK PAIN [None]
  - CONVULSION [None]
  - EYE PRURITUS [None]
  - PAIN IN JAW [None]
  - FEELING COLD [None]
  - FATIGUE [None]
